FAERS Safety Report 9173592 (Version 1)
Quarter: 2013Q1

REPORT INFORMATION
  Report Type: Spontaneous
  Country: IT (occurrence: IT)
  Receive Date: 20130320
  Receipt Date: 20130320
  Transmission Date: 20140127
  Serious: Yes (Other)
  Sender: FDA-Public Use
  Company Number: IT-MYLANLABS-2013S1005572

PATIENT
  Age: 68 Year
  Sex: Male
  Weight: 55 kg

DRUGS (5)
  1. IRINOTECAN [Suspect]
     Indication: COLON CANCER
     Dosage: CYCLIC
     Route: 042
     Dates: start: 20121117, end: 20121219
  2. IRINOTECAN [Suspect]
     Indication: COLON CANCER
     Dates: start: 20130122
  3. AVASTIN [Suspect]
     Indication: COLON CANCER
     Dosage: CYCLIC
     Route: 042
     Dates: start: 20120904, end: 20121204
  4. AVASTIN [Suspect]
     Indication: COLON CANCER
     Dates: end: 20130122
  5. 5-FLUOROURACIL [Suspect]
     Indication: COLON CANCER
     Dosage: CYCLIC
     Route: 042
     Dates: start: 20120904, end: 20130122

REACTIONS (3)
  - Blood bilirubin increased [Recovering/Resolving]
  - Proteinuria [Recovering/Resolving]
  - Gastrointestinal toxicity [Unknown]
